FAERS Safety Report 7069237-X (Version None)
Quarter: 2010Q4

REPORT INFORMATION
  Report Type: 
  Country: None (occurrence: None)
  Receive Date: 20101028
  Receipt Date: 20101025
  Transmission Date: 20110411
  Serious: Yes (Hospitalization, Other)
  Sender: FDA-Public Use
  Company Number: GB-ROXANE LABORATORIES, INC.-2010-RO-01414RO

PATIENT
  Age: 44 Year
  Sex: Female

DRUGS (1)
  1. MEFLOQUINE HYDROCHLORIDE [Suspect]
     Indication: MALARIA PROPHYLAXIS

REACTIONS (6)
  - BLOOD URINE PRESENT [None]
  - DIARRHOEA [None]
  - LEUKOCYTOSIS [None]
  - NITRITE URINE PRESENT [None]
  - POSTURAL ORTHOSTATIC TACHYCARDIA SYNDROME [None]
  - PROTEIN URINE PRESENT [None]
